FAERS Safety Report 26132138 (Version 1)
Quarter: 2025Q4

REPORT INFORMATION
  Report Type: Spontaneous
  Country: AU (occurrence: AU)
  Receive Date: 20251208
  Receipt Date: 20251208
  Transmission Date: 20260118
  Serious: Yes (Other)
  Sender: NOVO NORDISK
  Company Number: None

PATIENT
  Sex: Male

DRUGS (4)
  1. LEVEMIR [Suspect]
     Active Substance: INSULIN DETEMIR
     Indication: Product used for unknown indication
     Dosage: UNK
  2. NOVORAPID [Suspect]
     Active Substance: INSULIN ASPART
     Indication: Product used for unknown indication
     Dosage: UNK
  3. TOUJEO [Suspect]
     Active Substance: INSULIN GLARGINE
     Indication: Product used for unknown indication
     Dosage: STRENGTH OF 100 IU/ML AND 300 IU/ML
  4. LANTUS [Suspect]
     Active Substance: INSULIN GLARGINE
     Indication: Product used for unknown indication
     Dosage: UNK

REACTIONS (9)
  - Mental impairment [Unknown]
  - Retinopathy [Unknown]
  - Anxiety [Unknown]
  - Burnout syndrome [Unknown]
  - Depression [Unknown]
  - Disturbance in attention [Unknown]
  - Insomnia [Unknown]
  - Blood glucose decreased [Unknown]
  - Contraindicated product administered [Unknown]
